FAERS Safety Report 8899501 (Version 1)
Quarter: 2012Q4

REPORT INFORMATION
  Report Type: 
  Country: FR (occurrence: FR)
  Receive Date: 20121109
  Receipt Date: 20121109
  Transmission Date: 20130627
  Serious: Yes (Hospitalization)
  Sender: FDA-Public Use
  Company Number: FR-PFIZER INC-2012275711

PATIENT
  Age: 65 Year
  Sex: Male

DRUGS (3)
  1. CELEBREX [Suspect]
     Indication: GONALGIA
     Dosage: 200 mg, 1x/day
     Route: 048
     Dates: start: 201208, end: 201209
  2. CASODEX [Concomitant]
     Indication: PROSTATE CANCER
     Dosage: 50 mg, 1x/day
     Route: 048
     Dates: start: 201201
  3. VERAPAMIL [Concomitant]
     Indication: HYPERTENSION ARTERIAL
     Route: 048

REACTIONS (6)
  - Hepatocellular injury [Recovering/Resolving]
  - Gastroenteritis staphylococcal [Recovering/Resolving]
  - Proctocolitis [Recovering/Resolving]
  - Diarrhoea [Recovering/Resolving]
  - Weight decreased [Recovering/Resolving]
  - General physical health deterioration [Recovering/Resolving]
